FAERS Safety Report 23562376 (Version 1)
Quarter: 2024Q1

REPORT INFORMATION
  Report Type: Spontaneous
  Country: US (occurrence: US)
  Receive Date: 20240226
  Receipt Date: 20240226
  Transmission Date: 20240410
  Serious: No
  Sender: FDA-Public Use
  Company Number: US-SA-SAC20240215000891

PATIENT
  Sex: Female
  Weight: 74.8 kg

DRUGS (12)
  1. DUPIXENT [Suspect]
     Active Substance: DUPILUMAB
     Indication: Dermatitis atopic
     Dosage: 300 MG, Q4W
     Route: 058
     Dates: start: 202103
  2. FAMOTIDINE [Concomitant]
     Active Substance: FAMOTIDINE
  3. XYZAL [Concomitant]
     Active Substance: LEVOCETIRIZINE DIHYDROCHLORIDE
  4. COLLAGEN [Concomitant]
     Active Substance: COLLAGEN
  5. VITAMIN D3 [Concomitant]
     Active Substance: CHOLECALCIFEROL
  6. ALAWAY [Concomitant]
     Active Substance: KETOTIFEN FUMARATE
  7. BLINK TEARS [Concomitant]
     Active Substance: POLYETHYLENE GLYCOL 400
  8. TYLENOL [Concomitant]
     Active Substance: ACETAMINOPHEN
  9. MAGNESIUM [Concomitant]
     Active Substance: MAGNESIUM
  10. PROAIR DIGIHALER [Concomitant]
     Active Substance: ALBUTEROL SULFATE
  11. QVAR REDIHALER [Concomitant]
     Active Substance: BECLOMETHASONE DIPROPIONATE
  12. FLUAD QUAD [Concomitant]

REACTIONS (2)
  - Hypersensitivity [Unknown]
  - Inappropriate schedule of product administration [Unknown]
